FAERS Safety Report 15612065 (Version 2)
Quarter: 2019Q2

REPORT INFORMATION
  Report Type: Spontaneous
  Country: US (occurrence: US)
  Receive Date: 20181113
  Receipt Date: 20190402
  Transmission Date: 20190711
  Serious: Yes (Other)
  Sender: FDA-Public Use
  Company Number: US-SA-2018SA311047

PATIENT
  Age: 63 Year
  Sex: Female
  Weight: 79 kg

DRUGS (4)
  1. TAXOTERE [Suspect]
     Active Substance: DOCETAXEL
     Indication: BREAST CANCER FEMALE
     Dosage: 75 MG, Q3W
     Route: 042
     Dates: start: 20141114, end: 20141114
  2. CYTOXAN [Concomitant]
     Active Substance: CYCLOPHOSPHAMIDE
     Dosage: 600 MG
     Route: 042
  3. NEOSAR [Concomitant]
     Active Substance: CYCLOPHOSPHAMIDE
     Dosage: UNK
  4. TAXOTERE [Suspect]
     Active Substance: DOCETAXEL
     Dosage: 75 MG, Q3W
     Route: 042
     Dates: start: 20150116, end: 20150116

REACTIONS (2)
  - Alopecia [Recovering/Resolving]
  - Psychological trauma [Unknown]

NARRATIVE: CASE EVENT DATE: 2014
